FAERS Safety Report 22776307 (Version 2)
Quarter: 2024Q3

REPORT INFORMATION
  Report Type: Spontaneous
  Country: GB (occurrence: GB)
  Receive Date: 20230802
  Receipt Date: 20240903
  Transmission Date: 20241017
  Serious: Yes (Other)
  Sender: TORRENT
  Company Number: None

PATIENT
  Age: 32 Year
  Sex: Female
  Weight: 53 kg

DRUGS (2)
  1. MONTELUKAST [Suspect]
     Active Substance: MONTELUKAST SODIUM
     Indication: Asthma
     Dosage: 10 MG
     Route: 048
     Dates: start: 20220104, end: 20220110
  2. PREDNISONE [Concomitant]
     Active Substance: PREDNISONE
     Indication: Ill-defined disorder
     Dosage: UNKNOWN
     Route: 065

REACTIONS (6)
  - Anxiety [Recovering/Resolving]
  - Obsessive thoughts [Unknown]
  - Sleep terror [Unknown]
  - Restlessness [Unknown]
  - Formication [Unknown]
  - Pruritus [Unknown]

NARRATIVE: CASE EVENT DATE: 20220105
